FAERS Safety Report 11859451 (Version 1)
Quarter: 2015Q4

REPORT INFORMATION
  Report Type: Report from Study
  Country: RU (occurrence: RU)
  Receive Date: 20151221
  Receipt Date: 20151221
  Transmission Date: 20160305
  Serious: Yes (Hospitalization)
  Sender: FDA-Public Use
  Company Number: RU-ROCHE-1279577

PATIENT
  Age: 33 Year
  Sex: Male
  Weight: 77 kg

DRUGS (2)
  1. PEG-INTERFERON ALFA 2A [Suspect]
     Active Substance: PEGINTERFERON ALFA-2A
     Indication: CHRONIC HEPATITIS C
     Dosage: LAST DOSE PRIOR TO SERIOUS ADVERSE EVENT: 06/SEP/2013
     Route: 058
     Dates: start: 20130621, end: 20130906
  2. RIBAVIRIN. [Suspect]
     Active Substance: RIBAVIRIN
     Indication: CHRONIC HEPATITIS C
     Dosage: LAST DOSE PRIOR TO SERIOUS ADVERSE EVENT: 06/SEP/2013
     Route: 048
     Dates: start: 20130621, end: 20130906

REACTIONS (2)
  - Toxic skin eruption [Recovered/Resolved]
  - Rash pruritic [Recovering/Resolving]

NARRATIVE: CASE EVENT DATE: 20130911
